FAERS Safety Report 22286522 (Version 1)
Quarter: 2023Q2

REPORT INFORMATION
  Report Type: Report from Study
  Country: JP (occurrence: JP)
  Receive Date: 20230505
  Receipt Date: 20230505
  Transmission Date: 20230722
  Serious: Yes (Other)
  Sender: FDA-Public Use
  Company Number: JP-ORPHANEU-2023002709

PATIENT

DRUGS (6)
  1. CYSTADANE [Suspect]
     Active Substance: BETAINE
     Indication: Homocystinuria
     Dosage: 5G/DAILY, BID
     Route: 048
     Dates: start: 20151112
  2. ASPIRIN [Concomitant]
     Active Substance: ASPIRIN
     Indication: Prophylaxis
     Dosage: 100 MILLIGRAM, QD
     Route: 048
  3. METGLUCO [Concomitant]
     Active Substance: METFORMIN HYDROCHLORIDE
     Indication: Disease complication
     Dosage: 2250 MILLIGRAM DAILY, TID
     Route: 048
  4. JANUVIA [Concomitant]
     Active Substance: SITAGLIPTIN PHOSPHATE
     Indication: Disease complication
     Dosage: 50 MILLIGRAM, QD
     Route: 048
  5. METHYLCOBALAMIN [Concomitant]
     Active Substance: METHYLCOBALAMIN
     Indication: Product used for unknown indication
     Dosage: 1000 MG DAILY, BID
     Route: 048
     Dates: start: 20220623
  6. LEVETIRACETAM [Concomitant]
     Active Substance: LEVETIRACETAM
     Indication: Disease complication
     Dosage: 1500MG/DAILY, BID
     Route: 048
     Dates: start: 20221028

REACTIONS (3)
  - Mental disorder [Unknown]
  - Musculoskeletal disorder [Unknown]
  - Angiopathy [Unknown]

NARRATIVE: CASE EVENT DATE: 20221214
